FAERS Safety Report 8479951-7 (Version None)
Quarter: 2012Q2

REPORT INFORMATION
  Report Type: 
  Country: None (occurrence: None)
  Receive Date: 20120629
  Receipt Date: 20120622
  Transmission Date: 20120825
  Serious: Yes (Death)
  Sender: FDA-Public Use
  Company Number: US-BAXTER-2012BAX009854

PATIENT
  Sex: Female

DRUGS (4)
  1. CIPROFLOXACIN [Concomitant]
  2. DOXORUBICIN HCL [Suspect]
     Indication: BREAST CANCER
     Route: 042
  3. NEUPOGEN [Concomitant]
  4. CYCLOPHOSPHAMIDE [Suspect]
     Indication: BREAST CANCER
     Dosage: 2.4 GM/M^2
     Route: 042

REACTIONS (1)
  - ASPERGILLOSIS [None]
